FAERS Safety Report 9190914 (Version 2)
Quarter: 2013Q2

REPORT INFORMATION
  Report Type: Spontaneous
  Country: FR (occurrence: FR)
  Receive Date: 20130326
  Receipt Date: 20130416
  Transmission Date: 20140414
  Serious: Yes (Other)
  Sender: FDA-Public Use
  Company Number: FR-GLAXOSMITHKLINE-B0876493A

PATIENT
  Age: 80 Year
  Sex: Female

DRUGS (3)
  1. CLAVENTIN [Suspect]
     Indication: RESPIRATORY DISORDER
     Route: 042
     Dates: start: 20130212, end: 20130212
  2. CEFTRIAXONE [Concomitant]
     Indication: RESPIRATORY DISORDER
     Dates: start: 20130116, end: 20130212
  3. CIPROFLOXACINE [Concomitant]
     Indication: RESPIRATORY DISORDER
     Dosage: 520MG UNKNOWN
     Route: 065
     Dates: start: 20130212

REACTIONS (3)
  - Rash generalised [Recovered/Resolved]
  - Dyspnoea [Recovered/Resolved]
  - Chest discomfort [Recovered/Resolved]
